FAERS Safety Report 14957742 (Version 1)
Quarter: 2018Q2

REPORT INFORMATION
  Report Type: Spontaneous
  Country: US (occurrence: US)
  Receive Date: 20180531
  Receipt Date: 20180531
  Transmission Date: 20180711
  Serious: Yes (Other)
  Sender: FDA-Public Use
  Company Number: US-SA-2017SA265337

PATIENT
  Age: 50 Year
  Sex: Female
  Weight: 80 kg

DRUGS (8)
  1. TAXOTERE [Suspect]
     Active Substance: DOCETAXEL
     Indication: BREAST CANCER
     Dosage: 149 MG,Q3W
     Route: 051
     Dates: start: 20111228, end: 20111228
  2. AROMASIN [Concomitant]
     Active Substance: EXEMESTANE
  3. CURCUMIN [Concomitant]
     Active Substance: CURCUMIN
  4. LORAZEPAM. [Concomitant]
     Active Substance: LORAZEPAM
  5. PARAPLATIN [Concomitant]
     Active Substance: CARBOPLATIN
  6. VITAMIN D3 [Concomitant]
     Active Substance: CHOLECALCIFEROL
  7. TAXOTERE [Suspect]
     Active Substance: DOCETAXEL
     Dosage: 149 MG,Q3W
     Route: 051
     Dates: start: 20120411, end: 20120411
  8. TOCOPHEROL [Concomitant]
     Active Substance: TOCOPHEROL

REACTIONS (2)
  - Psychological trauma [Unknown]
  - Alopecia [Recovering/Resolving]

NARRATIVE: CASE EVENT DATE: 20170710
